FAERS Safety Report 4614695-0 (Version None)
Quarter: 2005Q1

REPORT INFORMATION
  Report Type: 
  Country: None (occurrence: None)
  Receive Date: 20050322
  Receipt Date: 20050309
  Transmission Date: 20050727
  Serious: Yes (Other)
  Sender: FDA-Public Use
  Company Number: GB-JNJFOC-20050302362

PATIENT
  Age: 39 Year
  Sex: Male
  Weight: 92.9 kg

DRUGS (5)
  1. REMICADE [Suspect]
     Indication: PSORIATIC ARTHROPATHY
     Route: 042
  2. FOLIC ACID [Concomitant]
     Indication: PROPHYLAXIS
     Route: 049
  3. LANSOPRAZOLE [Concomitant]
     Indication: DYSPEPSIA
     Route: 049
  4. LANSOPRAZOLE [Concomitant]
     Indication: GASTROOESOPHAGEAL REFLUX DISEASE
     Route: 049
  5. METHOTREXATE [Concomitant]
     Indication: PSORIATIC ARTHROPATHY
     Route: 049

REACTIONS (3)
  - CONDITION AGGRAVATED [None]
  - HERPES ZOSTER [None]
  - PSORIASIS [None]
